FAERS Safety Report 25712092 (Version 3)
Quarter: 2025Q4

REPORT INFORMATION
  Report Type: Spontaneous
  Country: US (occurrence: US)
  Receive Date: 20250821
  Receipt Date: 20251008
  Transmission Date: 20260117
  Serious: No
  Sender: PFIZER
  Company Number: US-PFIZER INC-202500163733

PATIENT
  Age: 7 Year
  Sex: Male
  Weight: 18.14 kg

DRUGS (4)
  1. GENOTROPIN [Suspect]
     Active Substance: SOMATROPIN
     Indication: Growth hormone deficiency
     Dosage: 0.9MG EVERY DAY; DOES 1.0MG ONE DAY AND 0.8MG THE NEXT AND GOES BACK AND FORTH
     Route: 058
     Dates: start: 202407
  2. GENOTROPIN [Suspect]
     Active Substance: SOMATROPIN
     Dosage: 0.8 MG, 7 DAYS/WEEK
     Route: 058
  3. CETIRIZINE [Concomitant]
     Active Substance: CETIRIZINE HYDROCHLORIDE
     Indication: Hypersensitivity
     Dosage: 7.5 MG, DAILY
     Route: 048
  4. LACTULOSE [Concomitant]
     Active Substance: LACTULOSE
     Dosage: 10 MG
     Route: 048

REACTIONS (3)
  - Device use error [Unknown]
  - Device breakage [Unknown]
  - Device issue [Unknown]
